FAERS Safety Report 10052604 (Version 4)
Quarter: 2014Q2

REPORT INFORMATION
  Report Type: Spontaneous
  Country: LY (occurrence: LY)
  Receive Date: 20140402
  Receipt Date: 20140509
  Transmission Date: 20141212
  Serious: Yes (Death, Hospitalization)
  Sender: FDA-Public Use
  Company Number: LY-ABBVIE-14P-097-1219495-00

PATIENT
  Age: 1 Day
  Sex: Male
  Weight: 1.45 kg

DRUGS (10)
  1. SURVANTA [Suspect]
     Indication: NEONATAL RESPIRATORY DISTRESS SYNDROME
     Dosage: ROUTE ETT
     Dates: start: 20140114, end: 20140115
  2. SURVANTA [Suspect]
     Dosage: 7PM,6CC
     Dates: start: 20140206, end: 20140206
  3. SURVANTA [Suspect]
     Dosage: 12 MN
     Dates: start: 20140206, end: 20140206
  4. SURVANTA [Suspect]
     Dosage: 8 AM
     Dates: start: 20140207, end: 20140207
  5. AMPICILLIN [Concomitant]
     Indication: INFECTION PROPHYLAXIS
     Route: 042
     Dates: start: 20140206, end: 20140211
  6. AMPICILLIN [Concomitant]
     Indication: NEONATAL RESPIRATORY DISTRESS SYNDROME
  7. AMINOPHYLIN [Concomitant]
     Indication: INFECTION PROPHYLAXIS
     Route: 042
     Dates: start: 20140206, end: 20140211
  8. AMINOPHYLIN [Concomitant]
     Indication: NEONATAL RESPIRATORY DISTRESS SYNDROME
  9. AMINOPHYLIN [Concomitant]
     Indication: RESPIRATORY DISORDER
  10. CLAFORAN [Concomitant]
     Indication: INFECTION PROPHYLAXIS
     Route: 042
     Dates: start: 20140206, end: 20140211

REACTIONS (2)
  - Pulmonary haemorrhage [Fatal]
  - Respiratory acidosis [Unknown]
